FAERS Safety Report 5489449-6 (Version None)
Quarter: 2007Q4

REPORT INFORMATION
  Report Type: 
  Country: None (occurrence: None)
  Receive Date: 20071009
  Receipt Date: 20070223
  Transmission Date: 20080405
  Serious: Yes (Hospitalization, Other)
  Sender: FDA-Public Use
  Company Number: 2006US002645

PATIENT
  Sex: Male

DRUGS (3)
  1. AMBISOME [Suspect]
     Indication: SPOROTRICHOSIS
     Dosage: 5 MG/KG, IV NOS
     Route: 042
     Dates: start: 20060801, end: 20060906
  2. ZOFRAN [Concomitant]
  3. FENTANYL (FENTANYL) FOR PATCH [Concomitant]

REACTIONS (3)
  - BLOOD CREATININE INCREASED [None]
  - BLOOD MAGNESIUM DECREASED [None]
  - BLOOD POTASSIUM DECREASED [None]
